FAERS Safety Report 9621273 (Version 3)
Quarter: 2014Q1

REPORT INFORMATION
  Report Type: Spontaneous
  Country: IT (occurrence: IT)
  Receive Date: 20131015
  Receipt Date: 20140106
  Transmission Date: 20141002
  Serious: Yes (Hospitalization)
  Sender: FDA-Public Use
  Company Number: IT-JNJFOC-20131003869

PATIENT
  Age: 66 Year
  Sex: Female

DRUGS (4)
  1. RISPERDAL [Suspect]
     Indication: PRODUCT USED FOR UNKNOWN INDICATION
     Route: 048
     Dates: start: 20131006, end: 20131006
  2. CARDIOASPIRIN [Suspect]
     Indication: PRODUCT USED FOR UNKNOWN INDICATION
     Route: 048
     Dates: start: 20131006, end: 20131006
  3. CITALOPRAM [Suspect]
     Indication: PRODUCT USED FOR UNKNOWN INDICATION
     Route: 048
     Dates: start: 20131006, end: 20131006
  4. TRIATEC [Concomitant]
     Indication: PRODUCT USED FOR UNKNOWN INDICATION

REACTIONS (5)
  - Self injurious behaviour [Recovering/Resolving]
  - Intentional overdose [Unknown]
  - Tachycardia [Recovering/Resolving]
  - Sopor [Recovering/Resolving]
  - Drug abuse [Unknown]
